FAERS Safety Report 8197882-7 (Version None)
Quarter: 2012Q1

REPORT INFORMATION
  Report Type: 
  Country: None (occurrence: None)
  Receive Date: 20120309
  Receipt Date: 20120301
  Transmission Date: 20120608
  Serious: Yes (Hospitalization)
  Sender: FDA-Public Use
  Company Number: AT-B.I. PHARMACEUTICALS,INC./RIDGEFIELD-2009-AP-00388AP

PATIENT
  Sex: Male

DRUGS (4)
  1. VIRAMUNE [Suspect]
     Indication: HIV INFECTION
     Dosage: 400 MG
     Route: 048
     Dates: start: 20091013
  2. MARCUMAR [Suspect]
     Indication: PULMONARY EMBOLISM
     Route: 048
     Dates: start: 20090929
  3. VIRAMUNE [Suspect]
     Dosage: 400 MG
     Route: 048
     Dates: start: 20091102
  4. TRUVADA [Concomitant]
     Indication: HIV INFECTION
     Dosage: 200/245
     Route: 048
     Dates: start: 20091013

REACTIONS (10)
  - MELAENA [None]
  - HAEMOGLOBIN DECREASED [None]
  - DIARRHOEA [None]
  - PULMONARY EMBOLISM [None]
  - HAEMATOCRIT DECREASED [None]
  - VOMITING [None]
  - ANAEMIA [None]
  - PYREXIA [None]
  - URINARY TRACT INFECTION [None]
  - GASTRIC OCCULT BLOOD POSITIVE [None]
